FAERS Safety Report 18357079 (Version 1)
Quarter: 2020Q4

REPORT INFORMATION
  Report Type: Spontaneous
  Country: US (occurrence: US)
  Receive Date: 20201007
  Receipt Date: 20201007
  Transmission Date: 20210114
  Serious: No
  Sender: FDA-Public Use
  Company Number: US-SHIRE-US202032409

PATIENT
  Sex: Male

DRUGS (4)
  1. GATTEX [Suspect]
     Active Substance: TEDUGLUTIDE\WATER
     Indication: PRODUCT USED FOR UNKNOWN INDICATION
     Dosage: 0.056 UNK, 1X/DAY:QD
     Route: 058
     Dates: start: 20200903, end: 20200930
  2. GATTEX [Suspect]
     Active Substance: TEDUGLUTIDE\WATER
     Indication: PRODUCT USED FOR UNKNOWN INDICATION
     Dosage: 0.056 UNK, 1X/DAY:QD
     Route: 058
     Dates: start: 20200903, end: 20200930
  3. GATTEX [Suspect]
     Active Substance: TEDUGLUTIDE\WATER
     Indication: PRODUCT USED FOR UNKNOWN INDICATION
     Dosage: 0.056 UNK, 1X/DAY:QD
     Route: 058
     Dates: start: 20200903, end: 20200930
  4. GATTEX [Suspect]
     Active Substance: TEDUGLUTIDE\WATER
     Indication: PRODUCT USED FOR UNKNOWN INDICATION
     Dosage: 0.056 UNK, 1X/DAY:QD
     Route: 058
     Dates: start: 20200903, end: 20200930

REACTIONS (1)
  - Vomiting [Unknown]
